FAERS Safety Report 18444647 (Version 1)
Quarter: 2020Q4

REPORT INFORMATION
  Report Type: Spontaneous
  Country: US (occurrence: US)
  Receive Date: 20201030
  Receipt Date: 20201030
  Transmission Date: 20210114
  Serious: No
  Sender: FDA-Public Use
  Company Number: US-JNJFOC-20201024762

PATIENT
  Age: 52 Year
  Sex: Female
  Weight: 90.8 kg

DRUGS (1)
  1. WOMENS ROGAINE [Suspect]
     Active Substance: MINOXIDIL
     Indication: ALOPECIA
     Dosage: DOSE: FILL IT UP FOR EVERY USE
     Route: 061
     Dates: start: 202009, end: 20201006

REACTIONS (3)
  - Application site pruritus [Recovered/Resolved]
  - Application site exfoliation [Recovering/Resolving]
  - Application site dryness [Recovered/Resolved]

NARRATIVE: CASE EVENT DATE: 20201006
